FAERS Safety Report 19232957 (Version 2)
Quarter: 2021Q2

REPORT INFORMATION
  Report Type: Report from Study
  Country: None (occurrence: US)
  Receive Date: 20210507
  Receipt Date: 20210513
  Transmission Date: 20210717
  Serious: Yes (Other)
  Sender: FDA-Public Use
  Company Number: US-ABBVIE-21K-163-3892342-00

PATIENT
  Sex: Male

DRUGS (1)
  1. VENCLEXTA [Suspect]
     Active Substance: VENETOCLAX
     Indication: CHRONIC LYMPHOCYTIC LEUKAEMIA RECURRENT
     Route: 048
     Dates: start: 20191022

REACTIONS (7)
  - Fatigue [Unknown]
  - Dyspnoea [Unknown]
  - Blood count abnormal [Unknown]
  - Haemoglobin abnormal [Unknown]
  - Near death experience [Unknown]
  - Platelet count decreased [Unknown]
  - Night sweats [Unknown]
